FAERS Safety Report 4741893-8 (Version None)
Quarter: 2005Q3

REPORT INFORMATION
  Report Type: 
  Country: None (occurrence: None)
  Receive Date: 20050801
  Receipt Date: 20050620
  Transmission Date: 20060218
  Serious: No
  Sender: FDA-Public Use
  Company Number: 2005PV000067

PATIENT
  Age: 50 Year
  Sex: Female
  Weight: 115.2136 kg

DRUGS (7)
  1. BYETTA [Suspect]
     Indication: DIABETES MELLITUS NON-INSULIN-DEPENDENT
     Dosage: 5 UG;BID;SC
     Route: 058
     Dates: start: 20060616
  2. LANTUS [Concomitant]
  3. HUMALOG [Concomitant]
  4. ZOCOR [Concomitant]
  5. ATENOLOL [Concomitant]
  6. BENICAR [Concomitant]
  7. CYMBALTA [Concomitant]

REACTIONS (3)
  - MICTURITION FREQUENCY DECREASED [None]
  - THIRST DECREASED [None]
  - WEIGHT DECREASED [None]
